FAERS Safety Report 6235614-X (Version None)
Quarter: 2009Q2

REPORT INFORMATION
  Report Type: 
  Country: None (occurrence: None)
  Receive Date: 20090616
  Receipt Date: 20090601
  Transmission Date: 20091009
  Serious: Yes (Other)
  Sender: FDA-Public Use
  Company Number: APP200900301

PATIENT
  Age: 52 Year
  Sex: Male

DRUGS (3)
  1. METHOTREXATE [Suspect]
     Indication: ANKYLOSING SPONDYLITIS
     Dosage: 15 MG, 1 IN 1 WK
     Dates: start: 20021001, end: 20030701
  2. OMEPRAZOLE [Concomitant]
  3. PREDNISOLONE [Concomitant]

REACTIONS (6)
  - BLISTER [None]
  - DUODENITIS [None]
  - GASTRITIS ATROPHIC [None]
  - IRON DEFICIENCY ANAEMIA [None]
  - MALABSORPTION [None]
  - RASH PRURITIC [None]
